FAERS Safety Report 7116750-2 (Version None)
Quarter: 2010Q4

REPORT INFORMATION
  Report Type: 
  Country: None (occurrence: None)
  Receive Date: 20101122
  Receipt Date: 20101109
  Transmission Date: 20110411
  Serious: Yes (Hospitalization, Other)
  Sender: FDA-Public Use
  Company Number: GXKR2010US12642

PATIENT
  Age: 58 Year
  Sex: Male

DRUGS (2)
  1. ENOXAPARIN (NGX) [Suspect]
     Indication: CEREBROVASCULAR ACCIDENT
     Dosage: 960-1600 MG (12.8 - 21 MG/KG) (ADMINISTERED BY 12-20 X 80MG PRELOADED SYRINGES)
     Route: 042
  2. WARFARIN [Concomitant]
     Route: 065

REACTIONS (5)
  - ABDOMINAL PAIN [None]
  - ABDOMINAL TENDERNESS [None]
  - FLANK PAIN [None]
  - HEADACHE [None]
  - OVERDOSE [None]
